FAERS Safety Report 5003248-0 (Version None)
Quarter: 2006Q2

REPORT INFORMATION
  Report Type: 
  Country: None (occurrence: None)
  Receive Date: 20060502
  Receipt Date: 20060419
  Transmission Date: 20061013
  Serious: Yes (Hospitalization)
  Sender: FDA-Public Use
  Company Number: 200610131BBE

PATIENT
  Age: 64 Year
  Sex: Female

DRUGS (3)
  1. GAMUNEX [Suspect]
     Indication: THROMBOCYTOPENIA
     Dosage: SEE IMAGE, INTRAVENOUS
     Route: 042
     Dates: start: 20060227
  2. GAMUNEX [Suspect]
  3. SYNTHROID [Concomitant]

REACTIONS (2)
  - ADRENAL CORTICAL INSUFFICIENCY [None]
  - MENINGITIS ASEPTIC [None]
